FAERS Safety Report 22104366 (Version 2)
Quarter: 2023Q2

REPORT INFORMATION
  Report Type: Spontaneous
  Country: US (occurrence: US)
  Receive Date: 20230316
  Receipt Date: 20230413
  Transmission Date: 20230721
  Serious: No
  Sender: FDA-Public Use
  Company Number: US-PFIZER INC-PV202300045055

PATIENT
  Age: 69 Year
  Sex: Male

DRUGS (3)
  1. INLYTA [Suspect]
     Active Substance: AXITINIB
     Dosage: 3 MG, CYCLIC (3MG BID (TWICE A DAY) DAILY FOR 3 WEEKS ON AND ONE WEEK OFF)
  2. INLYTA [Suspect]
     Active Substance: AXITINIB
     Dosage: 5 MG, 2X/DAY
  3. INLYTA [Suspect]
     Active Substance: AXITINIB
     Dosage: 3 MG, 2X/DAY

REACTIONS (6)
  - Hypertension [Unknown]
  - Fatigue [Unknown]
  - Weight decreased [Unknown]
  - Oropharyngeal pain [Unknown]
  - Off label use [Unknown]
  - Product dose omission issue [Unknown]
